FAERS Safety Report 23542129 (Version 3)
Quarter: 2024Q2

REPORT INFORMATION
  Report Type: Report from Study
  Country: CA (occurrence: CA)
  Receive Date: 20240220
  Receipt Date: 20240510
  Transmission Date: 20240716
  Serious: Yes (Other)
  Sender: FDA-Public Use
  Company Number: CA-CELLTRION INC.-2023CA018968

PATIENT

DRUGS (4)
  1. YUFLYMA [Suspect]
     Active Substance: ADALIMUMAB-AATY
     Indication: Crohn^s disease
     Dosage: 40 MILLIGRAM, Q2WEEKS
     Route: 058
     Dates: start: 20230902
  2. YUFLYMA [Suspect]
     Active Substance: ADALIMUMAB-AATY
     Dosage: 80 MG WEEK 2; LOADING DOSE
     Route: 058
     Dates: start: 20231003
  3. YUFLYMA [Suspect]
     Active Substance: ADALIMUMAB-AATY
     Dosage: 40 MG Q2WEEKS
     Route: 058
     Dates: start: 20240209
  4. PREDNISONE [Concomitant]
     Active Substance: PREDNISONE
     Dosage: TAPERING DOWN NOW AT 25 MG DAILY

REACTIONS (4)
  - Crohn^s disease [Not Recovered/Not Resolved]
  - Drug delivery system malfunction [Recovered/Resolved]
  - Product dispensing error [Unknown]
  - Drug dose omission by device [Recovered/Resolved]
